FAERS Safety Report 8469823-6 (Version None)
Quarter: 2012Q2

REPORT INFORMATION
  Report Type: 
  Country: None (occurrence: None)
  Receive Date: 20120626
  Receipt Date: 20120625
  Transmission Date: 20120825
  Serious: Yes (Death)
  Sender: FDA-Public Use
  Company Number: CHPA2011US018235

PATIENT
  Sex: Male

DRUGS (2)
  1. PREVACID 24 HR [Suspect]
     Indication: GASTRITIS
     Dosage: 2-3 DF, QD
     Route: 048
  2. EXCEDRIN (MIGRAINE) [Concomitant]
     Indication: BACK PAIN
     Dosage: UNK
     Route: 048

REACTIONS (4)
  - DEATH [None]
  - OFF LABEL USE [None]
  - OVERDOSE [None]
  - INCORRECT DRUG ADMINISTRATION DURATION [None]
